FAERS Safety Report 10086674 (Version 3)
Quarter: 2014Q2

REPORT INFORMATION
  Report Type: Report from Study
  Country: CN (occurrence: CN)
  Receive Date: 20140418
  Receipt Date: 20140624
  Transmission Date: 20141212
  Serious: Yes (Hospitalization)
  Sender: FDA-Public Use
  Company Number: CN-GLAXOSMITHKLINE-B0982093A

PATIENT
  Age: 22 Year
  Sex: Female
  Weight: 54.8 kg

DRUGS (4)
  1. BELIMUMAB [Suspect]
     Indication: SYSTEMIC LUPUS ERYTHEMATOSUS
     Route: 042
     Dates: start: 20140123
  2. CALCITRIOL [Concomitant]
     Indication: SYSTEMIC LUPUS ERYTHEMATOSUS
  3. GLYCYRRHIZIN [Concomitant]
     Indication: PROPHYLAXIS
  4. LANSOPRAZOLE [Concomitant]
     Indication: PROPHYLAXIS

REACTIONS (1)
  - Cutaneous vasculitis [Recovered/Resolved]
